FAERS Safety Report 17418877 (Version 4)
Quarter: 2020Q3

REPORT INFORMATION
  Report Type: Report from Study
  Country: US (occurrence: US)
  Receive Date: 20200214
  Receipt Date: 20200824
  Transmission Date: 20201102
  Serious: Yes (Life-Threatening, Hospitalization, Other)
  Sender: FDA-Public Use
  Company Number: US-BIOGEN-2020BI00837287

PATIENT
  Age: 49 Year
  Sex: Male

DRUGS (1)
  1. TYSABRI [Suspect]
     Active Substance: NATALIZUMAB
     Indication: MULTIPLE SCLEROSIS
     Dosage: INFUSED FOR OVER 1 HOUR
     Route: 042
     Dates: start: 20190204, end: 20191220

REACTIONS (5)
  - Intestinal obstruction [Not Recovered/Not Resolved]
  - Asthenia [Unknown]
  - Pancreatitis [Recovered/Resolved]
  - Decreased appetite [Unknown]
  - Pancreatic cyst [Recovered/Resolved]

NARRATIVE: CASE EVENT DATE: 202001
